FAERS Safety Report 5234778-4 (Version None)
Quarter: 2007Q1

REPORT INFORMATION
  Report Type: 
  Country: None (occurrence: None)
  Receive Date: 20070209
  Receipt Date: 20070205
  Transmission Date: 20070707
  Serious: Yes (Disabling)
  Sender: FDA-Public Use
  Company Number: US-BOEHRINGER INGELHEIM PHARMACEUTICALS, INC.-2007-BP-01739BP

PATIENT
  Age: 65 Year
  Sex: Male

DRUGS (3)
  1. SPIRIVA [Suspect]
     Indication: CHRONIC OBSTRUCTIVE PULMONARY DISEASE
     Route: 055
     Dates: start: 20061215
  2. EFFEXOR [Concomitant]
  3. ALBUTEROL [Concomitant]

REACTIONS (4)
  - CHEST PAIN [None]
  - JOINT SWELLING [None]
  - LUNG DISORDER [None]
  - OEDEMA PERIPHERAL [None]
